FAERS Safety Report 7060706-5 (Version None)
Quarter: 2010Q4

REPORT INFORMATION
  Report Type: 
  Country: None (occurrence: None)
  Receive Date: 20101025
  Receipt Date: 20101013
  Transmission Date: 20110411
  Serious: Yes (Hospitalization)
  Sender: FDA-Public Use
  Company Number: FR-ROCHE-721401

PATIENT
  Sex: Male
  Weight: 95 kg

DRUGS (11)
  1. CELLCEPT [Suspect]
     Route: 048
     Dates: start: 20040101
  2. CERTICAN [Suspect]
     Route: 065
  3. CERTICAN [Suspect]
     Dosage: 2 MG IN MORNING AND 1.5 MG IN THE EVENING
     Route: 065
  4. MOPRAL [Concomitant]
     Dosage: DRUG NAME: MOPRAL 10
  5. KARDEGIC [Concomitant]
     Indication: PROPHYLAXIS
     Dosage: DRUG NAME: KARDEGIC 160
  6. CORTANCYL [Concomitant]
     Indication: IMMUNOSUPPRESSION
     Dosage: IN THE MORNING
  7. RAMIPRIL [Concomitant]
     Dosage: DRUG NAME: RAMIPRIL 5; IN THE EVENING
  8. CARDENSIEL [Concomitant]
     Dosage: DRUG NAME: CARDENSIEL 1.25; IN THE MORNING
  9. DIGOXINE [Concomitant]
     Dosage: IN THE MORNING
  10. ALDACTONE [Concomitant]
     Dosage: DRUG NAME: ALDACTONE 25
  11. LIPUR [Concomitant]
     Indication: CARDIOVASCULAR EVENT PROPHYLAXIS
     Dosage: DRUG NAME: LIPUR 450, IN THE EVENING

REACTIONS (1)
  - HEART TRANSPLANT REJECTION [None]
